FAERS Safety Report 9014091 (Version 2)
Quarter: 2013Q1

REPORT INFORMATION
  Report Type: Spontaneous
  Country: DE (occurrence: DE)
  Receive Date: 20130115
  Receipt Date: 20130201
  Transmission Date: 20140127
  Serious: Yes (Hospitalization, Other)
  Sender: FDA-Public Use
  Company Number: DE-TEVA-379730USA

PATIENT
  Age: 76 Year
  Sex: Male
  Weight: 80 kg

DRUGS (4)
  1. TREANDA [Suspect]
     Indication: NON-HODGKIN^S LYMPHOMA
     Dosage: REGIMEN #1
     Route: 051
     Dates: start: 20121116
  2. TREANDA [Suspect]
     Dosage: REGIMEN #2
     Route: 051
     Dates: start: 20121120
  3. RITUXIMAB [Suspect]
     Indication: NON-HODGKIN^S LYMPHOMA
     Dosage: REGIMEN #1
     Route: 051
     Dates: start: 20121115
  4. CORTISONE [Suspect]
     Indication: NON-HODGKIN^S LYMPHOMA
     Dates: start: 20121115

REACTIONS (1)
  - Alveolitis [Recovering/Resolving]
